FAERS Safety Report 11927537 (Version 1)
Quarter: 2016Q1

REPORT INFORMATION
  Report Type: Spontaneous
  Country: US (occurrence: US)
  Receive Date: 20160119
  Receipt Date: 20160119
  Transmission Date: 20160526
  Serious: Yes (Other)
  Sender: FDA-Public Use
  Company Number: US-ASTELLAS-2015US040281

PATIENT
  Sex: Male

DRUGS (2)
  1. XTANDI [Suspect]
     Active Substance: ENZALUTAMIDE
     Indication: HORMONE-REFRACTORY PROSTATE CANCER
     Dosage: 160 MG, ONCE DAILY (04 CAPSULES OF 40 MG)
     Route: 048
     Dates: start: 201510
  2. PAMIDRONATE DISODIUM. [Concomitant]
     Active Substance: PAMIDRONATE DISODIUM
     Indication: PRODUCT USED FOR UNKNOWN INDICATION
     Dosage: UNK UNK, UNKNOWN FREQ.
     Route: 065

REACTIONS (8)
  - Blood glucose increased [Recovering/Resolving]
  - Diabetes mellitus [Unknown]
  - Constipation [Unknown]
  - Asthenia [Unknown]
  - Memory impairment [Unknown]
  - Fatigue [Unknown]
  - Drug dose omission [Unknown]
  - Gait disturbance [Unknown]
